FAERS Safety Report 12389044 (Version 4)
Quarter: 2016Q4

REPORT INFORMATION
  Report Type: Report from Study
  Country: US (occurrence: US)
  Receive Date: 20160520
  Receipt Date: 20161126
  Transmission Date: 20170207
  Serious: No
  Sender: FDA-Public Use
  Company Number: PHEH2016US012623

PATIENT
  Age: 64 Year
  Sex: Female

DRUGS (2)
  1. XANAX [Suspect]
     Active Substance: ALPRAZOLAM
     Indication: ANXIETY
     Dosage: 1 MG, (4 TIMES A DAY)
     Route: 048
     Dates: start: 20040101
  2. SANDOSTATIN LAR DEPOT [Suspect]
     Active Substance: OCTREOTIDE ACETATE
     Indication: CARCINOID SYNDROME
     Dosage: 30 MG, QMO (EVERY 4 WEEKS)
     Route: 030
     Dates: start: 201101

REACTIONS (5)
  - Injection site mass [Recovered/Resolved]
  - Injection site reaction [Unknown]
  - Injection site haemorrhage [Recovered/Resolved]
  - Inappropriate schedule of drug administration [Recovered/Resolved]
  - Inappropriate schedule of drug administration [Unknown]

NARRATIVE: CASE EVENT DATE: 20160721
